FAERS Safety Report 13549570 (Version 1)
Quarter: 2017Q2

REPORT INFORMATION
  Report Type: Spontaneous
  Country: ES (occurrence: ES)
  Receive Date: 20170516
  Receipt Date: 20170516
  Transmission Date: 20170830
  Serious: Yes (Other)
  Sender: FDA-Public Use
  Company Number: PHHY2017ES063089

PATIENT

DRUGS (1)
  1. SIGNIFOR [Suspect]
     Active Substance: PASIREOTIDE
     Indication: ACROMEGALY
     Route: 065

REACTIONS (4)
  - Arthralgia [Unknown]
  - Hyperglycaemia [Recovered/Resolved]
  - Headache [Unknown]
  - Myalgia [Unknown]
